FAERS Safety Report 7897985-8 (Version None)
Quarter: 2011Q4

REPORT INFORMATION
  Report Type: 
  Country: None (occurrence: None)
  Receive Date: 20111107
  Receipt Date: 20111107
  Transmission Date: 20120403
  Serious: Yes (Death)
  Sender: FDA-Public Use
  Company Number: None

PATIENT
  Sex: Male
  Weight: 57.5 kg

DRUGS (1)
  1. PRADAXA [Suspect]
     Indication: ATRIAL FIBRILLATION
     Dosage: 75MG
     Route: 048
     Dates: start: 20110313, end: 20110620

REACTIONS (4)
  - PARALYSIS [None]
  - FAECES DISCOLOURED [None]
  - SEDATION [None]
  - HAEMOPTYSIS [None]
